FAERS Safety Report 18629713 (Version 1)
Quarter: 2020Q4

REPORT INFORMATION
  Report Type: Spontaneous
  Country: DE (occurrence: DE)
  Receive Date: 20201217
  Receipt Date: 20201217
  Transmission Date: 20210114
  Serious: Yes (Other)
  Sender: FDA-Public Use
  Company Number: DE-IGSA-NC20005198

PATIENT

DRUGS (7)
  1. AT III NF [Suspect]
     Active Substance: ANTITHROMBIN III HUMAN
     Indication: PRODUCT USED FOR UNKNOWN INDICATION
     Dosage: 500 IU, UNK
     Route: 065
     Dates: start: 20171108, end: 20171108
  2. ALBUMIN (HUMAN) [Suspect]
     Active Substance: ALBUMIN HUMAN
     Indication: PRODUCT USED FOR UNKNOWN INDICATION
     Dosage: UNK
     Route: 065
  3. PROTHROMPLEX (FACTORS II, VII, IX, X, PROTEIN C) [Suspect]
     Active Substance: COAGULATION FACTOR IX HUMAN\COAGULATION FACTOR VII HUMAN\COAGULATION FACTOR X HUMAN\PROTEIN C\PROTHROMBIN
     Indication: PRODUCT USED FOR UNKNOWN INDICATION
     Dosage: 5400 IU, UNK
     Route: 065
     Dates: start: 20171107, end: 20171107
  4. PROTHROMPLEX (FACTORS II, VII, IX, X, PROTEIN C) [Suspect]
     Active Substance: COAGULATION FACTOR IX HUMAN\COAGULATION FACTOR VII HUMAN\COAGULATION FACTOR X HUMAN\PROTEIN C\PROTHROMBIN
     Dosage: 2400 IU, UNK
     Route: 065
     Dates: start: 20171106, end: 20171106
  5. PROTHROMPLEX (FACTORS II, VII, IX, X, PROTEIN C) [Suspect]
     Active Substance: COAGULATION FACTOR IX HUMAN\COAGULATION FACTOR VII HUMAN\COAGULATION FACTOR X HUMAN\PROTEIN C\PROTHROMBIN
     Dosage: 600 IU, UNK
     Route: 065
     Dates: start: 20171108, end: 20171108
  6. PROTHROMPLEX (FACTORS II, VII, IX, X, PROTEIN C) [Suspect]
     Active Substance: COAGULATION FACTOR IX HUMAN\COAGULATION FACTOR VII HUMAN\COAGULATION FACTOR X HUMAN\PROTEIN C\PROTHROMBIN
     Dosage: 600 IU, UNK
     Route: 065
     Dates: start: 20171108, end: 20171108
  7. PROTHROMPLEX (FACTORS II, VII, IX, X, PROTEIN C) [Suspect]
     Active Substance: COAGULATION FACTOR IX HUMAN\COAGULATION FACTOR VII HUMAN\COAGULATION FACTOR X HUMAN\PROTEIN C\PROTHROMBIN
     Dosage: 600 IU, UNK
     Route: 065
     Dates: start: 20171108, end: 20171108

REACTIONS (4)
  - Shock haemorrhagic [Unknown]
  - HIV infection [Unknown]
  - Coagulopathy [Unknown]
  - Suspected transmission of an infectious agent via product [Unknown]
